FAERS Safety Report 22270084 (Version 2)
Quarter: 2024Q2

REPORT INFORMATION
  Report Type: Spontaneous
  Country: US (occurrence: US)
  Receive Date: 20230501
  Receipt Date: 20240531
  Transmission Date: 20240716
  Serious: No
  Sender: FDA-Public Use
  Company Number: US-SA-SAC20230426001602

PATIENT
  Sex: Male

DRUGS (1)
  1. DUPIXENT [Suspect]
     Active Substance: DUPILUMAB
     Indication: Dermatitis
     Dosage: 300 MG, Q4W
     Route: 058
     Dates: start: 202210

REACTIONS (5)
  - Burning sensation [Unknown]
  - Rash erythematous [Unknown]
  - Pruritus [Unknown]
  - Product use in unapproved indication [Unknown]
  - Eye irritation [Unknown]

NARRATIVE: CASE EVENT DATE: 20221001
